FAERS Safety Report 5049892-6 (Version None)
Quarter: 2006Q3

REPORT INFORMATION
  Report Type: 
  Country: None (occurrence: None)
  Receive Date: 20060706
  Receipt Date: 20060627
  Transmission Date: 20061208
  Serious: Yes (Other)
  Sender: FDA-Public Use
  Company Number: 200612718BCC

PATIENT
  Age: 26 Year
  Sex: Male
  Weight: 72.5755 kg

DRUGS (1)
  1. GENUINE BAYER TABLETS (ACETYLSALICYLIC ACID) [Suspect]
     Indication: HEADACHE
     Dosage: 650 MG, TOTAL DAILY; ORAL
     Route: 048
     Dates: start: 20060625, end: 20060626

REACTIONS (3)
  - EAR DISORDER [None]
  - HYPOACUSIS [None]
  - HYPOAESTHESIA [None]
